FAERS Safety Report 10945851 (Version 1)
Quarter: 2015Q1

REPORT INFORMATION
  Report Type: Report from Study
  Country: US (occurrence: US)
  Receive Date: 20150323
  Receipt Date: 20150323
  Transmission Date: 20150721
  Serious: Yes (Other)
  Sender: FDA-Public Use
  Company Number: US-BAYER-2015-045073

PATIENT
  Age: 64 Year
  Sex: Male

DRUGS (1)
  1. NEXAVAR [Suspect]
     Active Substance: SORAFENIB
     Indication: COLON CANCER
     Dosage: 400 MG, BID
     Route: 048

REACTIONS (3)
  - Sneezing [Not Recovered/Not Resolved]
  - Off label use [None]
  - Haemoptysis [Not Recovered/Not Resolved]
